FAERS Safety Report 5569052-X (Version None)
Quarter: 2007Q4

REPORT INFORMATION
  Report Type: 
  Country: None (occurrence: None)
  Receive Date: 20071220
  Receipt Date: 20070605
  Transmission Date: 20080405
  Serious: No
  Sender: FDA-Public Use
  Company Number: A0654280A

PATIENT
  Age: 75 Year
  Sex: Male

DRUGS (3)
  1. AVODART [Suspect]
     Indication: BENIGN PROSTATIC HYPERPLASIA
     Dosage: .5MG TWO TIMES PER WEEK
     Route: 048
     Dates: start: 20040801
  2. FLOMAX [Concomitant]
  3. FLONASE [Concomitant]

REACTIONS (4)
  - BREAST ENLARGEMENT [None]
  - DRUG INEFFECTIVE [None]
  - LIBIDO DECREASED [None]
  - PROSTATIC PAIN [None]
